FAERS Safety Report 8121393-8 (Version None)
Quarter: 2012Q1

REPORT INFORMATION
  Report Type: 
  Country: None (occurrence: None)
  Receive Date: 20120208
  Receipt Date: 20120201
  Transmission Date: 20120608
  Serious: No
  Sender: FDA-Public Use
  Company Number: US-PFIZER INC-2012028308

PATIENT
  Sex: Female
  Weight: 68.9 kg

DRUGS (7)
  1. SPIRONOLACTONE [Suspect]
     Indication: HYPERTENSION
     Dosage: 100 MG, DAILY
  2. CALTRATE PLUS [Suspect]
     Indication: VITAMIN SUPPLEMENTATION
     Dosage: UNK, 2 TIMES A DAY
     Route: 048
     Dates: start: 20120101, end: 20120201
  3. ACETYLSALICYLIC ACID SRT [Suspect]
     Indication: ANTICOAGULANT THERAPY
     Dosage: 325 MG, DAILY
  4. JANUVIA [Suspect]
     Indication: DIABETES MELLITUS
     Dosage: 100 MG, DAILY
  5. CARVEDILOL [Suspect]
     Indication: CARDIAC DISORDER
     Dosage: 25 MG, 2X/DAY
  6. HUMULIN 70/30 [Suspect]
     Indication: DIABETES MELLITUS
     Dosage: 15 UNITS IN THE MORNING AND 20 UNITS AT NIGHT
  7. CRESTOR [Suspect]
     Indication: BLOOD CHOLESTEROL INCREASED
     Dosage: 20MG, UNK

REACTIONS (4)
  - BLOOD PRESSURE INCREASED [None]
  - GAIT DISTURBANCE [None]
  - DIZZINESS [None]
  - HEADACHE [None]
